FAERS Safety Report 8804956 (Version 1)
Quarter: 2012Q4

REPORT INFORMATION
  Report Type: 
  Country: US (occurrence: US)
  Receive Date: 20120924
  Receipt Date: 20120924
  Transmission Date: 20130627
  Serious: Yes (Other)
  Sender: FDA-Public Use
  Company Number: US-ABBOTT-12P-163-0979881-00

PATIENT
  Sex: Male
  Weight: 90.8 kg

DRUGS (10)
  1. DEPAKOTE [Suspect]
     Indication: BIPOLAR DISORDER
     Dates: start: 1995
  2. DEPAKOTE ER [Suspect]
     Indication: BIPOLAR DISORDER
  3. DEPAKENE [Suspect]
     Indication: BIPOLAR DISORDER
  4. DIVALPROEX SODIUM [Suspect]
     Indication: BIPOLAR DISORDER
  5. VALPROIC ACID [Suspect]
     Indication: BIPOLAR DISORDER
     Dates: start: 2012
  6. DEPLIN [Concomitant]
     Indication: BIPOLAR DISORDER
  7. ZYPREXA [Concomitant]
     Indication: PRODUCT USED FOR UNKNOWN INDICATION
  8. ZOLOFT [Concomitant]
     Indication: PRODUCT USED FOR UNKNOWN INDICATION
  9. FERACON [Concomitant]
     Indication: PRODUCT USED FOR UNKNOWN INDICATION
  10. TYROSINT [Concomitant]
     Indication: PRODUCT USED FOR UNKNOWN INDICATION

REACTIONS (4)
  - Gastrectomy [Recovered/Resolved]
  - Off label use [Unknown]
  - Tremor [Not Recovered/Not Resolved]
  - Drug level below therapeutic [Not Recovered/Not Resolved]
